FAERS Safety Report 6581706-5 (Version None)
Quarter: 2010Q1

REPORT INFORMATION
  Report Type: 
  Country: None (occurrence: None)
  Receive Date: 20100215
  Receipt Date: 20100201
  Transmission Date: 20100710
  Serious: Yes (Life-Threatening, Hospitalization)
  Sender: FDA-Public Use
  Company Number: DE-MYLANLABS-2010S1001881

PATIENT
  Age: 81 Year
  Sex: Male
  Weight: 58 kg

DRUGS (7)
  1. ATENOLOL [Suspect]
     Indication: HYPERTENSION
     Route: 048
     Dates: start: 19900101, end: 20080819
  2. METFORMIN HCL [Interacting]
     Indication: TYPE 2 DIABETES MELLITUS
     Route: 048
     Dates: start: 20000101, end: 20080813
  3. GLIMEGAMMA [Interacting]
     Indication: TYPE 2 DIABETES MELLITUS
     Route: 048
     Dates: start: 20020101, end: 20080813
  4. ISOSORBIDE DINITRATE [Concomitant]
     Indication: CORONARY ARTERY DISEASE
     Route: 048
     Dates: start: 20000101, end: 20080818
  5. SPIRO COMP [Concomitant]
     Indication: HYPERTENSION
     Dosage: SPIRONOLACTON 50MG UND FUROSEMID 20MG
     Route: 048
     Dates: start: 20000101
  6. FERRO SANOL /00023503/ [Concomitant]
     Indication: IRON DEFICIENCY ANAEMIA
     Route: 048
  7. RUDOTEL [Concomitant]
     Indication: INSOMNIA
     Route: 048

REACTIONS (2)
  - DRUG INTERACTION [None]
  - HYPOGLYCAEMIA [None]
